FAERS Safety Report 9529352 (Version 1)
Quarter: 2013Q1

REPORT INFORMATION
  Report Type: Spontaneous
  Country: US (occurrence: None)
  Receive Date: 20130329
  Receipt Date: 20130329
  Transmission Date: 20140127
  Serious: Yes (Other)
  Sender: FDA-Public Use
  Company Number: 1000042482

PATIENT
  Age: 67 Year
  Sex: Female

DRUGS (12)
  1. LINZESS [Suspect]
     Indication: IRRITABLE BOWEL SYNDROME
     Dosage: 145MG (1145MG, 1 IN 1D) ORAL
     Route: 048
     Dates: start: 20130201
  2. LINZESS [Suspect]
     Indication: CONSTIPATION
     Dosage: 145MG (1145MG, 1 IN 1D) ORAL
     Route: 048
     Dates: start: 20130201
  3. SENNA (SENNA) (SENNA) [Concomitant]
  4. ALPRAZOLAM (ALPRAZOLAM) (ALPRAZOLAM) [Concomitant]
  5. METHOCARBAMOL (METHOCARBAMOL) (METHOCARBAMOL) [Concomitant]
  6. DIPHENHYDRAMINE (DIPHENHYDRAMINE) (DIPHENHYDRAMINE) [Concomitant]
  7. HYDROCODONE (HYDROCODONE) (HYDROCODONE) [Concomitant]
  8. ZANTAC (RANITIDINE HYDROCHLORIDE) (RANITIDINE HYDROCHLORIDE) [Concomitant]
  9. POTASSIUM (POTASSIUM) (POTASSIUM) [Concomitant]
  10. FISH OIL (FISH OIL) (FISH OIL) [Concomitant]
  11. MELATONIN (MELATONIN) (MELATONIN) [Concomitant]
  12. PROBIOTICS (PROBIOTICS) (PROBIOTICS) [Concomitant]

REACTIONS (2)
  - Drug ineffective [None]
  - Abdominal pain upper [None]
